FAERS Safety Report 12745374 (Version 1)
Quarter: 2016Q3

REPORT INFORMATION
  Report Type: Report from Study
  Country: AR (occurrence: AR)
  Receive Date: 20160915
  Receipt Date: 20160915
  Transmission Date: 20161109
  Serious: Yes (Other)
  Sender: FDA-Public Use
  Company Number: PHHY2016AR127010

PATIENT
  Sex: Female

DRUGS (1)
  1. DIOVAN [Suspect]
     Active Substance: VALSARTAN
     Indication: HYPERTENSION
     Dosage: 2 DF, QD (80, UNITS NOT PROVIDED) (ONE YEAR AND A HALF)
     Route: 065

REACTIONS (2)
  - Inappropriate schedule of drug administration [Unknown]
  - Eye haemorrhage [Recovering/Resolving]
